FAERS Safety Report 25980355 (Version 1)
Quarter: 2025Q4

REPORT INFORMATION
  Report Type: Spontaneous
  Country: EU (occurrence: EU)
  Receive Date: 20251030
  Receipt Date: 20251030
  Transmission Date: 20260118
  Serious: Yes (Life-Threatening)
  Sender: BAUSCH AND LOMB
  Company Number: EU-MLMSERVICE-20250821-PI623603-00232-1

PATIENT
  Age: 34 Year
  Sex: Female

DRUGS (4)
  1. AZATHIOPRINE [Suspect]
     Active Substance: AZATHIOPRINE
     Indication: Immunosuppressant drug therapy
     Route: 065
     Dates: start: 2008
  2. TACROLIMUS [Suspect]
     Active Substance: TACROLIMUS
     Indication: Immunosuppressant drug therapy
     Route: 065
     Dates: start: 2008, end: 2009
  3. MYCOPHENOLATE MOFETIL [Suspect]
     Active Substance: MYCOPHENOLATE MOFETIL
     Indication: Immunosuppressant drug therapy
     Route: 065
     Dates: start: 2008, end: 200812
  4. MYCOPHENOLATE MOFETIL [Suspect]
     Active Substance: MYCOPHENOLATE MOFETIL
     Dates: start: 200812

REACTIONS (2)
  - Aplasia pure red cell [Recovered/Resolved]
  - Parvovirus B19 infection [Recovered/Resolved]

NARRATIVE: CASE EVENT DATE: 20081201
